FAERS Safety Report 16884550 (Version 2)
Quarter: 2019Q4

REPORT INFORMATION
  Report Type: Spontaneous
  Country: VN (occurrence: VN)
  Receive Date: 20191004
  Receipt Date: 20191105
  Transmission Date: 20200122
  Serious: Yes (Other)
  Sender: FDA-Public Use
  Company Number: VN-ROCHE-2420834

PATIENT
  Age: 59 Year
  Sex: Female

DRUGS (1)
  1. ACTILYSE [Suspect]
     Active Substance: ALTEPLASE
     Indication: PRODUCT USED FOR UNKNOWN INDICATION
     Route: 065
     Dates: start: 20180417

REACTIONS (4)
  - Reocclusion [Recovered/Resolved]
  - Drug ineffective [Unknown]
  - Cerebral artery occlusion [Recovered/Resolved]
  - NIH stroke scale abnormal [Recovered/Resolved]

NARRATIVE: CASE EVENT DATE: 20180417
